FAERS Safety Report 4465775-4 (Version None)
Quarter: 2004Q3

REPORT INFORMATION
  Report Type: 
  Country: None (occurrence: None)
  Receive Date: 20040929
  Receipt Date: 20040916
  Transmission Date: 20050211
  Serious: Yes (Hospitalization)
  Sender: FDA-Public Use
  Company Number: S04-USA-06201-01

PATIENT
  Age: 48 Year
  Sex: Male

DRUGS (4)
  1. CELEXA [Suspect]
     Indication: HEPATITIS C
     Dosage: 40 MG QD PO
     Route: 048
     Dates: start: 20020101, end: 20020925
  2. CELEXA [Suspect]
     Indication: HEPATITIS C
     Dosage: 60 MG QD PO
     Route: 048
     Dates: start: 20020926, end: 20021101
  3. CELEXA [Suspect]
     Indication: HEPATITIS C
     Dates: start: 20030101, end: 20030401
  4. INTERFERON [Concomitant]

REACTIONS (14)
  - AGGRESSION [None]
  - AMMONIA DECREASED [None]
  - ANGER [None]
  - BLOOD POTASSIUM INCREASED [None]
  - BLOOD PRESSURE INCREASED [None]
  - CHILLS [None]
  - FATIGUE [None]
  - FEELING JITTERY [None]
  - FLUSHING [None]
  - HOSTILITY [None]
  - HYPERHIDROSIS [None]
  - MEMORY IMPAIRMENT [None]
  - NAUSEA [None]
  - VOMITING [None]
